FAERS Safety Report 4977385-0 (Version None)
Quarter: 2006Q2

REPORT INFORMATION
  Report Type: 
  Country: None (occurrence: None)
  Receive Date: 20060412
  Receipt Date: 20060403
  Transmission Date: 20061013
  Serious: No
  Sender: FDA-Public Use
  Company Number: 2006-140025-NL

PATIENT
  Age: 37 Year
  Sex: Female

DRUGS (10)
  1. VECURONIUM BROMIDE [Suspect]
     Indication: ANAESTHESIA
     Dosage: 10 MG ONCE/4 MG ONCE
     Route: 042
     Dates: start: 20060315, end: 20060315
  2. VECURONIUM BROMIDE [Suspect]
     Indication: ANAESTHESIA
     Dosage: 10 MG ONCE/4 MG ONCE
     Route: 042
     Dates: start: 20060315, end: 20060315
  3. LIDOCAINE [Concomitant]
  4. PROPOFOL [Concomitant]
  5. SEVOFLURANE [Concomitant]
  6. NITROUS OXIDE W/ OXYGEN [Concomitant]
  7. BUPIVACAINE [Concomitant]
  8. ROPIVACAINE [Concomitant]
  9. ATROPINE SULFATE [Concomitant]
  10. HYDROXYZINE HYDROCHLORIDE [Concomitant]

REACTIONS (5)
  - BLOOD PRESSURE DECREASED [None]
  - BRONCHOSPASM [None]
  - DRUG HYPERSENSITIVITY [None]
  - PO2 DECREASED [None]
  - RESPIRATORY FAILURE [None]
